FAERS Safety Report 17146749 (Version 1)
Quarter: 2019Q4

REPORT INFORMATION
  Report Type: Spontaneous
  Country: JP (occurrence: JP)
  Receive Date: 20191212
  Receipt Date: 20191212
  Transmission Date: 20200122
  Serious: Yes (Death)
  Sender: FDA-Public Use
  Company Number: JP-MYLANLABS-2019M1123624

PATIENT
  Age: 83 Year
  Sex: Female

DRUGS (2)
  1. PREDNISOLONE. [Suspect]
     Active Substance: PREDNISOLONE
     Dosage: 7.5 MILLIGRAM, QD
     Route: 065
  2. PREDNISOLONE. [Suspect]
     Active Substance: PREDNISOLONE
     Indication: COLITIS
     Dosage: 30 MILLIGRAM, QD
     Route: 065

REACTIONS (8)
  - Staphylococcal infection [Fatal]
  - Cardio-respiratory arrest [Fatal]
  - Thoracic haemorrhage [Fatal]
  - Mediastinal haemorrhage [Fatal]
  - Infective aortitis [Fatal]
  - Penetrating aortic ulcer [Fatal]
  - Arthritis bacterial [Fatal]
  - Penetrating atherosclerotic ulcer [Fatal]
